FAERS Safety Report 4670458-1 (Version None)
Quarter: 2005Q2

REPORT INFORMATION
  Report Type: 
  Country: None (occurrence: None)
  Receive Date: 20050523
  Receipt Date: 20050517
  Transmission Date: 20051028
  Serious: Yes (Other)
  Sender: FDA-Public Use
  Company Number: 805#1#2005-00043

PATIENT
  Age: 1 Day
  Sex: Male

DRUGS (7)
  1. ALPROSTADIL [Suspect]
     Indication: HEART DISEASE CONGENITAL
     Dosage: SEE IMAGE
     Route: 041
     Dates: start: 20041027, end: 20041028
  2. ALPROSTADIL [Suspect]
     Indication: HEART DISEASE CONGENITAL
     Dosage: SEE IMAGE
     Route: 041
     Dates: start: 20041028, end: 20041030
  3. ALPROSTADIL [Suspect]
     Indication: HEART DISEASE CONGENITAL
     Dosage: SEE IMAGE
     Route: 041
     Dates: start: 20041030, end: 20041125
  4. ALPROSTADIL [Suspect]
     Indication: HEART DISEASE CONGENITAL
     Dosage: SEE IMAGE
     Route: 041
     Dates: start: 20041125, end: 20041201
  5. ALPROSTADIL [Suspect]
     Indication: HEART DISEASE CONGENITAL
     Dosage: SEE IMAGE
     Route: 041
     Dates: start: 20041201, end: 20041208
  6. AMINOPHYLLIN [Concomitant]
  7. FLOMOXEF-SDOIUM (FLOMOXEF SODIUM) [Concomitant]

REACTIONS (2)
  - APNOEIC ATTACK [None]
  - DRUG EFFECT DECREASED [None]
